FAERS Safety Report 8392177-0 (Version None)
Quarter: 2012Q2

REPORT INFORMATION
  Report Type: 
  Country: None (occurrence: None)
  Receive Date: 20120529
  Receipt Date: 20120519
  Transmission Date: 20120825
  Serious: Yes (Life-Threatening)
  Sender: FDA-Public Use
  Company Number: IN-ROCHE-1071844

PATIENT
  Age: 45 Year
  Sex: Female

DRUGS (7)
  1. DALTEPARIN SODIUM [Concomitant]
  2. METALYSE [Suspect]
     Indication: MYOCARDIAL INFARCTION
  3. METALYSE [Suspect]
     Indication: CORONARY ARTERY STENOSIS
  4. CLOPIDOGREL [Concomitant]
  5. METALYSE [Suspect]
     Indication: ANGINA PECTORIS
     Route: 042
  6. ATORVASTATIN CALCIUM [Concomitant]
  7. ASPIRIN [Concomitant]

REACTIONS (3)
  - BLOOD PRESSURE DECREASED [None]
  - ELECTROCARDIOGRAM ST SEGMENT ABNORMAL [None]
  - CHEST PAIN [None]
